FAERS Safety Report 7769883-1 (Version None)
Quarter: 2011Q3

REPORT INFORMATION
  Report Type: 
  Country: None (occurrence: None)
  Receive Date: 20110922
  Receipt Date: 20110916
  Transmission Date: 20111222
  Serious: Yes (Other)
  Sender: FDA-Public Use
  Company Number: RO-ABBOTT-11P-135-0854146-00

PATIENT
  Age: 61 Year
  Sex: Male
  Weight: 80 kg

DRUGS (7)
  1. KLACID I.V. [Suspect]
     Indication: INTERSTITIAL LUNG DISEASE
     Route: 042
     Dates: start: 20110909
  2. KLACID I.V. [Suspect]
  3. KLACID I.V. [Suspect]
  4. KLACID I.V. [Suspect]
  5. KLACID I.V. [Suspect]
  6. KLACID I.V. [Suspect]
  7. KLACID I.V. [Suspect]

REACTIONS (5)
  - DYSPNOEA [None]
  - HEADACHE [None]
  - HYPERTENSION [None]
  - BACK PAIN [None]
  - WHITE BLOOD CELL COUNT INCREASED [None]
